FAERS Safety Report 21687362 (Version 1)
Quarter: 2022Q4

REPORT INFORMATION
  Report Type: Spontaneous
  Country: US (occurrence: US)
  Receive Date: 20221206
  Receipt Date: 20221206
  Transmission Date: 20230112
  Serious: No
  Sender: FDA-Public Use
  Company Number: US-LUPIN PHARMACEUTICALS INC.-2022-14041

PATIENT

DRUGS (1)
  1. NITROFURANTOIN [Suspect]
     Active Substance: NITROFURANTOIN
     Indication: Cystitis
     Dosage: 100 MILLIGRAM, BID (MACROCRYSTALS/MONOHYDRATE FORMULATION)
     Route: 065

REACTIONS (1)
  - Abdominal discomfort [Unknown]
